FAERS Safety Report 15658048 (Version 2)
Quarter: 2018Q4

REPORT INFORMATION
  Report Type: Spontaneous
  Country: US (occurrence: US)
  Receive Date: 20181126
  Receipt Date: 20181130
  Transmission Date: 20190205
  Serious: Yes (Hospitalization)
  Sender: FDA-Public Use
  Company Number: US-BIOMARINAP-US-2018-120863

PATIENT
  Sex: Male
  Weight: 85.9 kg

DRUGS (1)
  1. NAGLAZYME [Suspect]
     Active Substance: GALSULFASE
     Indication: MUCOPOLYSACCHARIDOSIS VI
     Dosage: 90 MILLIGRAM, QW
     Route: 042
     Dates: start: 20181119

REACTIONS (2)
  - Urine abnormality [Recovered/Resolved]
  - Urinary tract infection [Recovered/Resolved]
